FAERS Safety Report 7008583-2 (Version None)
Quarter: 2010Q3

REPORT INFORMATION
  Report Type: 
  Country: None (occurrence: None)
  Receive Date: 20100922
  Receipt Date: 20100908
  Transmission Date: 20110219
  Serious: Yes (Life-Threatening, Hospitalization)
  Sender: FDA-Public Use
  Company Number: NO-WATSON-2010-12520

PATIENT
  Age: 75 Year
  Sex: Male

DRUGS (5)
  1. METOPROLOL (WATSON LABORATORIES) [Suspect]
     Indication: HYPERTENSION
     Dosage: 100 MG, QAM
  2. RAMIPRIL [Suspect]
     Indication: CARDIAC FAILURE
     Dosage: 10 MG, QAM
  3. SPIRONOLACTONE [Suspect]
     Indication: CARDIAC FAILURE
     Dosage: 25 MG, QAM
  4. DIGITOXIN [Suspect]
     Indication: CARDIAC FAILURE
     Dosage: 50 MCG, QAM
  5. BUMETANIDE [Suspect]
     Indication: CARDIAC FAILURE
     Dosage: 1.5 MG, QAM

REACTIONS (4)
  - CARDIOGENIC SHOCK [None]
  - HYPERKALAEMIA [None]
  - METABOLIC ACIDOSIS [None]
  - RENAL FAILURE ACUTE [None]
